FAERS Safety Report 7861047-6 (Version None)
Quarter: 2011Q4

REPORT INFORMATION
  Report Type: 
  Country: None (occurrence: None)
  Receive Date: 20111027
  Receipt Date: 20111019
  Transmission Date: 20120403
  Serious: Yes (Hospitalization)
  Sender: FDA-Public Use
  Company Number: JP-GLAXOSMITHKLINE-B0751653A

PATIENT
  Sex: Female

DRUGS (6)
  1. SEROQUEL [Concomitant]
     Dosage: 600MG PER DAY
     Route: 048
     Dates: start: 20110301
  2. ZYPREXA [Concomitant]
     Dosage: 10MG PER DAY
     Route: 048
     Dates: start: 20110916
  3. LAMICTAL [Suspect]
     Indication: BIPOLAR DISORDER
     Dosage: 25MG ALTERNATE DAYS
     Route: 048
     Dates: start: 20110709, end: 20110915
  4. CLONAZEPAM [Concomitant]
     Dosage: 1MG PER DAY
     Route: 048
     Dates: start: 20110301
  5. PROMETHAZINE HCL [Concomitant]
     Indication: PROPHYLAXIS
     Dosage: 75MG PER DAY
     Route: 048
     Dates: start: 20110601
  6. AMOBAN [Concomitant]
     Indication: INSOMNIA
     Dosage: 7.5MG PER DAY
     Route: 048
     Dates: start: 20100601

REACTIONS (1)
  - PERSECUTORY DELUSION [None]
